FAERS Safety Report 6986542-3 (Version None)
Quarter: 2010Q3

REPORT INFORMATION
  Report Type: 
  Country: None (occurrence: None)
  Receive Date: 20100915
  Receipt Date: 20090716
  Transmission Date: 20110219
  Serious: No
  Sender: FDA-Public Use
  Company Number: US-WYE-H10201409

PATIENT
  Sex: Male
  Weight: 72.64 kg

DRUGS (7)
  1. PRISTIQ [Suspect]
     Indication: DEPRESSION
     Route: 048
     Dates: start: 20090714
  2. CHLORDIAZEPOXIDE [Concomitant]
  3. GABITRIL [Concomitant]
  4. TRAMADOL [Concomitant]
  5. LISINOPRIL [Concomitant]
  6. NEURONTIN [Concomitant]
  7. MIRTAZAPINE [Concomitant]

REACTIONS (2)
  - RASH PRURITIC [None]
  - SKIN IRRITATION [None]
